FAERS Safety Report 11056029 (Version 4)
Quarter: 2015Q3

REPORT INFORMATION
  Report Type: Spontaneous
  Country: US (occurrence: US)
  Receive Date: 20150422
  Receipt Date: 20150717
  Transmission Date: 20151125
  Serious: Yes (Hospitalization, Other)
  Sender: FDA-Public Use
  Company Number: US-GLAXOSMITHKLINE-US2015053533

PATIENT
  Age: 53 Year
  Sex: Female

DRUGS (6)
  1. SYNTHROID [Concomitant]
     Active Substance: LEVOTHYROXINE SODIUM
  2. BUMETANIDE. [Concomitant]
     Active Substance: BUMETANIDE
  3. PENTOXIFYLLINE. [Concomitant]
     Active Substance: PENTOXIFYLLINE
  4. VANCOMYCIN [Suspect]
     Active Substance: VANCOMYCIN
     Indication: URINARY TRACT INFECTION
  5. LAMICTAL [Suspect]
     Active Substance: LAMOTRIGINE
     Indication: SEIZURE
     Dosage: 25 MG, SINGLE
     Route: 048
     Dates: start: 20150319, end: 20150320
  6. GLIPIZIDE. [Concomitant]
     Active Substance: GLIPIZIDE

REACTIONS (5)
  - Rash generalised [Recovered/Resolved]
  - Adverse drug reaction [Recovered/Resolved]
  - Nephrolithiasis [Recovering/Resolving]
  - Red man syndrome [Unknown]
  - Rash erythematous [Recovered/Resolved]

NARRATIVE: CASE EVENT DATE: 20150320
